FAERS Safety Report 8201554-X (Version None)
Quarter: 2012Q1

REPORT INFORMATION
  Report Type: 
  Country: None (occurrence: None)
  Receive Date: 20120312
  Receipt Date: 20120302
  Transmission Date: 20120608
  Serious: Yes (Hospitalization)
  Sender: FDA-Public Use
  Company Number: DE-ABBOTT-12P-062-0912755-00

PATIENT
  Sex: Male

DRUGS (3)
  1. LEUPROLIDE ACETATE [Suspect]
     Indication: PROSTATE CANCER
     Route: 058
     Dates: start: 20101124, end: 20110223
  2. ACETYLSALICYLIC ACID SRT [Concomitant]
     Indication: THROMBOSIS
     Dates: start: 20090101
  3. ENALAPRIL MALEATE [Concomitant]
     Indication: HYPERTENSION
     Dosage: 0.5 TABLET PER DAY

REACTIONS (4)
  - URINARY RETENTION [None]
  - SCLERODERMA [None]
  - OEDEMA PERIPHERAL [None]
  - INDURATION [None]
